FAERS Safety Report 7893842-1 (Version None)
Quarter: 2011Q4

REPORT INFORMATION
  Report Type: 
  Country: None (occurrence: None)
  Receive Date: 20111104
  Receipt Date: 20111025
  Transmission Date: 20120403
  Serious: Yes (Hospitalization)
  Sender: FDA-Public Use
  Company Number: PHEH2011US07274

PATIENT
  Sex: Female

DRUGS (8)
  1. SYNTHROID [Suspect]
     Indication: THYROID DISORDER
     Dosage: 88 MG DAILY
  2. TASIGNA [Suspect]
     Indication: CHRONIC MYELOID LEUKAEMIA
     Dosage: 400 MG, BID
     Route: 048
     Dates: start: 20110101
  3. LABETALOL HCL [Suspect]
     Indication: HYPERTENSION
     Dosage: 100 MG, BID
  4. TAGAMET [Suspect]
     Indication: GASTROOESOPHAGEAL REFLUX DISEASE
     Dosage: 200 MG, BID
  5. GLYBURIDE [Suspect]
     Indication: TYPE 2 DIABETES MELLITUS
     Dosage: 5 MG, BID
  6. CIPROFLOXACIN [Suspect]
  7. ASPIRIN [Suspect]
     Dosage: UNK
  8. TASIGNA [Suspect]
     Dosage: 200 MG, BID
     Route: 048
     Dates: start: 20110421

REACTIONS (3)
  - CEREBRAL INFARCTION [None]
  - HEMIPLEGIA [None]
  - CEREBROVASCULAR ACCIDENT [None]
